FAERS Safety Report 19779313 (Version 1)
Quarter: 2021Q3

REPORT INFORMATION
  Report Type: Spontaneous
  Country: GB (occurrence: GB)
  Receive Date: 20210902
  Receipt Date: 20210902
  Transmission Date: 20211014
  Serious: Yes (Other)
  Sender: FDA-Public Use
  Company Number: GB-MYLANLABS-2021M1057117

PATIENT
  Age: 23 Year
  Sex: Male
  Weight: 88.9 kg

DRUGS (2)
  1. CANNABIS SATIVA [Concomitant]
     Active Substance: CANNABIS SATIVA FLOWERING TOP
     Indication: ILL-DEFINED DISORDER
     Dosage: UNK
  2. SERTRALINE [Suspect]
     Active Substance: SERTRALINE HYDROCHLORIDE
     Indication: DEPRESSION SUICIDAL
     Dosage: 75
     Route: 048
     Dates: start: 20200919

REACTIONS (1)
  - Disorientation [Recovering/Resolving]

NARRATIVE: CASE EVENT DATE: 20210820
